FAERS Safety Report 7310866-3 (Version None)
Quarter: 2011Q1

REPORT INFORMATION
  Report Type: 
  Country: None (occurrence: None)
  Receive Date: 20110224
  Receipt Date: 20110210
  Transmission Date: 20110831
  Serious: Yes (Other)
  Sender: FDA-Public Use
  Company Number: DE-JNJFOC-20110205883

PATIENT
  Sex: Male
  Weight: 70 kg

DRUGS (2)
  1. PALEXIA [Suspect]
     Indication: PAIN
     Route: 065
  2. TILIDINE [Concomitant]

REACTIONS (1)
  - DEPRESSION [None]
